FAERS Safety Report 9423723 (Version 1)
Quarter: 2013Q3

REPORT INFORMATION
  Report Type: Report from Study
  Country: AR (occurrence: AR)
  Receive Date: 20130728
  Receipt Date: 20130728
  Transmission Date: 20140515
  Serious: Yes (Other)
  Sender: FDA-Public Use
  Company Number: AR-US-EMD SERONO, INC.-7225671

PATIENT
  Age: 60 Year
  Sex: Male

DRUGS (1)
  1. SAIZEN [Suspect]
     Indication: PRODUCT USED FOR UNKNOWN INDICATION
     Dates: start: 201102

REACTIONS (3)
  - Hypothalamo-pituitary disorder [Unknown]
  - Blindness [Unknown]
  - Fatigue [Not Recovered/Not Resolved]
